FAERS Safety Report 21588561 (Version 1)
Quarter: 2022Q4

REPORT INFORMATION
  Report Type: Spontaneous
  Country: US (occurrence: US)
  Receive Date: 20221114
  Receipt Date: 20221114
  Transmission Date: 20230112
  Serious: Yes (Other)
  Sender: FDA-Public Use
  Company Number: US-drreddys-SPO/USA/22/0157037

PATIENT
  Age: 14 Year
  Sex: Female

DRUGS (1)
  1. CIPROFLOXACIN [Suspect]
     Active Substance: CIPROFLOXACIN
     Indication: Suicide attempt
     Dosage: 12.5G, 154MG/KG
     Route: 048

REACTIONS (2)
  - Intentional overdose [Unknown]
  - Abdominal discomfort [Unknown]
